FAERS Safety Report 8430589-7 (Version None)
Quarter: 2012Q2

REPORT INFORMATION
  Report Type: 
  Country: None (occurrence: None)
  Receive Date: 20120612
  Receipt Date: 20120605
  Transmission Date: 20120825
  Serious: Yes (Other)
  Sender: FDA-Public Use
  Company Number: DE-GLAXOSMITHKLINE-D0075608A

PATIENT

DRUGS (6)
  1. AZILECT [Suspect]
     Dosage: 1MG PER DAY
     Route: 065
  2. LEVOTHYROXINE SODIUM [Concomitant]
     Dosage: 125MG PER DAY
     Route: 065
  3. REQUIP [Suspect]
     Indication: PARKINSON'S DISEASE
     Dosage: 8MG PER DAY
     Route: 048
  4. MADOPAR DEPOT [Suspect]
     Route: 065
  5. SEROQUEL [Suspect]
     Indication: BIPOLAR DISORDER
     Dosage: 200MG PER DAY
     Route: 065
     Dates: start: 20120301
  6. STALEVO 100 [Suspect]
     Dosage: 100MG FIVE TIMES PER DAY
     Route: 065

REACTIONS (3)
  - GAIT DISTURBANCE [None]
  - DRUG INTERACTION [None]
  - PARKINSON'S DISEASE [None]
